FAERS Safety Report 5927392-6 (Version None)
Quarter: 2008Q4

REPORT INFORMATION
  Report Type: 
  Country: None (occurrence: None)
  Receive Date: 20081022
  Receipt Date: 20081022
  Transmission Date: 20090506
  Serious: No
  Sender: FDA-Public Use
  Company Number: None

PATIENT
  Sex: Female
  Weight: 80.2867 kg

DRUGS (1)
  1. DILANTIN [Suspect]
     Indication: CONVULSION
     Dates: start: 20050501

REACTIONS (2)
  - CONVULSION [None]
  - THERAPEUTIC RESPONSE UNEXPECTED WITH DRUG SUBSTITUTION [None]
